FAERS Safety Report 6766056-6 (Version None)
Quarter: 2010Q2

REPORT INFORMATION
  Report Type: 
  Country: None (occurrence: None)
  Receive Date: 20100611
  Receipt Date: 20100604
  Transmission Date: 20101027
  Serious: Yes (Hospitalization)
  Sender: FDA-Public Use
  Company Number: B0649777A

PATIENT
  Sex: Male
  Weight: 112 kg

DRUGS (2)
  1. ARIXTRA [Suspect]
     Indication: THROMBOSIS PROPHYLAXIS
     Dosage: 2.5MG PER DAY
     Route: 058
     Dates: start: 20100210, end: 20100210
  2. NEXIUM [Concomitant]
     Dosage: 40MG UNKNOWN
     Route: 042
     Dates: start: 20100210

REACTIONS (2)
  - INCISION SITE HAEMATOMA [None]
  - INTESTINAL OBSTRUCTION [None]
